FAERS Safety Report 19287231 (Version 1)
Quarter: 2021Q2

REPORT INFORMATION
  Report Type: Spontaneous
  Country: DE (occurrence: DE)
  Receive Date: 20210522
  Receipt Date: 20210522
  Transmission Date: 20210717
  Serious: Yes (Other)
  Sender: FDA-Public Use
  Company Number: DE-AUROBINDO-AUR-APL-2021-020562

PATIENT
  Age: 54 Year
  Sex: Female

DRUGS (2)
  1. RIBAVIRIN. [Suspect]
     Active Substance: RIBAVIRIN
     Indication: CHRONIC HEPATITIS C
     Dosage: UNK
     Route: 065
  2. PEGINTERFERON ALFA?2A. [Suspect]
     Active Substance: PEGINTERFERON ALFA-2A
     Indication: CHRONIC HEPATITIS C
     Dosage: UNK
     Route: 065

REACTIONS (23)
  - Depressed mood [Recovering/Resolving]
  - Pruritus [Unknown]
  - Pain [Unknown]
  - Foramen magnum stenosis [Not Recovered/Not Resolved]
  - Depression [Recovered/Resolved]
  - Intervertebral disc protrusion [Recovering/Resolving]
  - Joint effusion [Not Recovered/Not Resolved]
  - Nausea [Recovering/Resolving]
  - Pyrexia [Unknown]
  - Chapped lips [Unknown]
  - Dry skin [Unknown]
  - Alopecia [Recovered/Resolved]
  - Myalgia [Recovered/Resolved]
  - Fatigue [Unknown]
  - Irritability [Recovered/Resolved]
  - Gastrooesophageal reflux disease [Recovering/Resolving]
  - Fall [Unknown]
  - Injection site erythema [Recovered/Resolved]
  - Blood thyroid stimulating hormone increased [Unknown]
  - Pain in extremity [Recovering/Resolving]
  - Abdominal pain [Recovered/Resolved]
  - Arthralgia [Not Recovered/Not Resolved]
  - Insomnia [Recovered/Resolved]

NARRATIVE: CASE EVENT DATE: 20121005
